FAERS Safety Report 5834570-3 (Version None)
Quarter: 2008Q3

REPORT INFORMATION
  Report Type: 
  Country: None (occurrence: None)
  Receive Date: 20080805
  Receipt Date: 20080724
  Transmission Date: 20090109
  Serious: Yes (Hospitalization, Other)
  Sender: FDA-Public Use
  Company Number: PL-GENENTECH-265597

PATIENT
  Sex: Female

DRUGS (4)
  1. HERCEPTIN [Suspect]
     Indication: BREAST CANCER
     Dosage: 576 MG, SINGLE
     Route: 042
     Dates: start: 20080704
  2. DOCETAXEL [Suspect]
     Indication: BREAST CANCER
     Dosage: 137 MG, Q3W
     Route: 042
     Dates: start: 20080704
  3. PEGFILGRASTIM [Concomitant]
     Indication: DRUG USE FOR UNKNOWN INDICATION
     Dosage: UNK
     Dates: start: 20080705, end: 20080705
  4. DEXAMETHASONE [Concomitant]
     Indication: DRUG USE FOR UNKNOWN INDICATION
     Dosage: UNK
     Dates: start: 20080705, end: 20080724

REACTIONS (1)
  - METRORRHAGIA [None]
